FAERS Safety Report 14257678 (Version 2)
Quarter: 2018Q1

REPORT INFORMATION
  Report Type: Report from Study
  Country: None (occurrence: US)
  Receive Date: 20171207
  Receipt Date: 20180217
  Transmission Date: 20180508
  Serious: Yes (Hospitalization)
  Sender: FDA-Public Use
  Company Number: US-ABBVIE-17K-163-2141353-00

PATIENT
  Age: 51 Year
  Sex: Female

DRUGS (2)
  1. METHOTREXATE. [Concomitant]
     Active Substance: METHOTREXATE
     Indication: PRODUCT USED FOR UNKNOWN INDICATION
     Route: 048
  2. HUMIRA [Suspect]
     Active Substance: ADALIMUMAB
     Indication: RHEUMATOID ARTHRITIS
     Route: 058
     Dates: start: 20171011

REACTIONS (9)
  - Headache [Unknown]
  - Chest pain [Unknown]
  - Nasopharyngitis [Unknown]
  - Infection [Unknown]
  - Hypoglycaemia [Unknown]
  - Anxiety [Unknown]
  - Dyspnoea [Unknown]
  - Dizziness [Unknown]
  - Chest discomfort [Unknown]

NARRATIVE: CASE EVENT DATE: 2017
